FAERS Safety Report 8931262 (Version 1)
Quarter: 2012Q4

REPORT INFORMATION
  Report Type: Report from Study
  Country: JP (occurrence: JP)
  Receive Date: 20121128
  Receipt Date: 20121128
  Transmission Date: 20130627
  Serious: Yes (Hospitalization, Other)
  Sender: FDA-Public Use
  Company Number: JP-VERTEX PHARMACEUTICAL INC.-AE-2012-003755

PATIENT
  Age: 67 Year
  Sex: Female

DRUGS (13)
  1. VX-950 (TELAPREVIR) [Suspect]
     Indication: CHRONIC HEPATITIS C
     Dosage: 1500 mg, qd
     Route: 048
     Dates: start: 20111209, end: 20120302
  2. PEGINTRON                          /01543001/ [Suspect]
     Indication: CHRONIC HEPATITIS C
     Dosage: 1.5 ?g/kg, weekly
     Route: 058
     Dates: start: 20111209, end: 20120309
  3. PEGINTRON                          /01543001/ [Suspect]
     Dosage: 1.5 ?g/kg, weekly
     Route: 058
     Dates: start: 20120316, end: 20120511
  4. PEGINTRON                          /01543001/ [Suspect]
     Dosage: 1.2 ?g/kg, weekly
     Route: 058
     Dates: start: 20120518
  5. REBETOL [Suspect]
     Indication: CHRONIC HEPATITIS C
     Dosage: 600 mg, qd
     Route: 048
     Dates: start: 20111209, end: 20120216
  6. REBETOL [Suspect]
     Dosage: 400 mg, qd
     Route: 048
     Dates: start: 20120217, end: 20120223
  7. REBETOL [Suspect]
     Dosage: 200 mg, qd
     Route: 048
     Dates: start: 20120224, end: 20120309
  8. REBETOL [Suspect]
     Dosage: 200 mg, qd
     Route: 048
     Dates: start: 20120319, end: 20120329
  9. REBETOL [Suspect]
     Dosage: 400 mg, qd
     Route: 048
     Dates: start: 20120330, end: 20120426
  10. REBETOL [Suspect]
     Dosage: 600 mg, qd
     Route: 048
     Dates: start: 20120427
  11. HERBESSER R [Concomitant]
     Dosage: 100 mg, qd
     Route: 048
     Dates: start: 20100219
  12. MAINTATE [Concomitant]
     Dosage: 5 mg, qd
     Route: 048
     Dates: start: 20100219
  13. DEPAS [Concomitant]
     Dosage: 0.5 DF, qd
     Route: 048
     Dates: start: 20100219

REACTIONS (2)
  - Anaemia [Recovered/Resolved]
  - White blood cell count decreased [Not Recovered/Not Resolved]
